FAERS Safety Report 23523899 (Version 1)
Quarter: 2024Q1

REPORT INFORMATION
  Report Type: Spontaneous
  Country: US (occurrence: US)
  Receive Date: 20240214
  Receipt Date: 20240214
  Transmission Date: 20240409
  Serious: Yes (Other)
  Sender: FDA-Public Use
  Company Number: US-PFIZER INC-PV202300076522

PATIENT
  Age: 81 Year
  Sex: Female
  Weight: 47.619 kg

DRUGS (2)
  1. IBRANCE [Suspect]
     Active Substance: PALBOCICLIB
     Indication: Breast cancer
     Dosage: 100 MG, DAILY (ON DAYS 1 THROUGH 1)
     Route: 048
     Dates: start: 20230706
  2. IBRANCE [Suspect]
     Active Substance: PALBOCICLIB
     Dosage: ONCE IN THE MORNING
     Route: 048
     Dates: end: 202311

REACTIONS (2)
  - Mastectomy [Unknown]
  - Product prescribing error [Unknown]

NARRATIVE: CASE EVENT DATE: 20231121
